FAERS Safety Report 9606764 (Version 2)
Quarter: 2013Q4

REPORT INFORMATION
  Report Type: Spontaneous
  Country: US (occurrence: US)
  Receive Date: 20131008
  Receipt Date: 20131008
  Transmission Date: 20140711
  Serious: Yes (Other)
  Sender: FDA-Public Use
  Company Number: US-AMGEN-USASP2013052302

PATIENT
  Age: 54 Year
  Sex: Female
  Weight: 78.91 kg

DRUGS (4)
  1. PROLIA [Suspect]
     Indication: OSTEOPOROSIS POSTMENOPAUSAL
     Dosage: 60 MG, Q6MO
     Route: 058
     Dates: start: 20130627
  2. SENSIPAR [Suspect]
     Indication: HYPERPARATHYROIDISM SECONDARY
     Dosage: 30 MG, QD
     Route: 065
  3. HERCEPTIN [Concomitant]
     Indication: BREAST CANCER
     Dosage: 462 MG, Q3WK
     Route: 042
     Dates: start: 20121212
  4. EXEMESTANE [Concomitant]
     Indication: BREAST CANCER
     Dosage: 25 MG, QD
     Route: 048
     Dates: start: 201305

REACTIONS (5)
  - Hypocalcaemia [Recovered/Resolved]
  - Hypoaesthesia [Recovered/Resolved]
  - Paraesthesia [Unknown]
  - Blood parathyroid hormone increased [Unknown]
  - Blood creatinine increased [Unknown]
